FAERS Safety Report 6542281-4 (Version None)
Quarter: 2010Q1

REPORT INFORMATION
  Report Type: 
  Country: None (occurrence: None)
  Receive Date: 20100114
  Receipt Date: 20100114
  Transmission Date: 20100710
  Serious: Yes (Other)
  Sender: FDA-Public Use
  Company Number: None

PATIENT
  Sex: Male
  Weight: 119.3 kg

DRUGS (3)
  1. VANCOMYCIN [Suspect]
     Indication: ARTHRITIS BACTERIAL
     Dosage: 2.25 GRAM 12 HR IV
     Route: 042
     Dates: start: 20091212, end: 20100101
  2. VANCOMYCIN [Suspect]
     Indication: BACTERAEMIA
     Dosage: 2.25 GRAM 12 HR IV
     Route: 042
     Dates: start: 20091212, end: 20100101
  3. VANCOMYCIN [Suspect]

REACTIONS (1)
  - RASH [None]
